FAERS Safety Report 5912069-3 (Version None)
Quarter: 2008Q4

REPORT INFORMATION
  Report Type: 
  Country: None (occurrence: None)
  Receive Date: 20081003
  Receipt Date: 20081003
  Transmission Date: 20090506
  Serious: Yes (Other)
  Sender: FDA-Public Use
  Company Number: None

PATIENT
  Age: 40 Year
  Sex: Male
  Weight: 130 kg

DRUGS (1)
  1. ABILIFY [Suspect]
     Indication: MENTAL DISORDER
     Dosage: 30 MG DAILY PO
     Route: 048
     Dates: start: 20030101, end: 20061001

REACTIONS (5)
  - AKATHISIA [None]
  - ARTHRITIS ENTEROPATHIC [None]
  - FIBROMYALGIA [None]
  - GLUCOSE TOLERANCE IMPAIRED [None]
  - WEIGHT INCREASED [None]
